FAERS Safety Report 9681448 (Version 2)
Quarter: 2013Q4

REPORT INFORMATION
  Report Type: Spontaneous
  Country: US (occurrence: US)
  Receive Date: 20131111
  Receipt Date: 20131111
  Transmission Date: 20140711
  Serious: No
  Sender: FDA-Public Use
  Company Number: US-TEVA-354562USA

PATIENT
  Age: 48 Year
  Sex: Female
  Weight: 56.75 kg

DRUGS (1)
  1. LOSEASONIQUE [Suspect]
     Indication: CONTRACEPTION
     Dates: start: 201207, end: 201208

REACTIONS (1)
  - Dyspnoea [Recovering/Resolving]
